FAERS Safety Report 4902577-6 (Version None)
Quarter: 2006Q1

REPORT INFORMATION
  Report Type: 
  Country: None (occurrence: None)
  Receive Date: 20060202
  Receipt Date: 20051107
  Transmission Date: 20060701
  Serious: Yes (Hospitalization)
  Sender: FDA-Public Use
  Company Number: DSK-2005-12115

PATIENT
  Age: 52 Year
  Sex: Female

DRUGS (8)
  1. EVOXAC [Suspect]
     Indication: SJOGREN'S SYNDROME
     Dosage: 30 (30 MG, 1 IN 1 D)
     Route: 048
     Dates: start: 20020527, end: 20020610
  2. URSO  (URSODEOXYCHOLIC ACID) (URSODEOXYCHOLIC ACID) [Concomitant]
  3. LIVACT (AMINO ACIDS NOS) (AMINO ACIDS NOS) [Concomitant]
  4. MAGNESIUM OXIDE (MAGNESIUM OXIDE) (MAGNESIUM OXIDE) [Concomitant]
  5. JUVELA-N (TOCOPHERYL NICOTINATE) (TOCOPHERYL NICOTINATE) [Concomitant]
  6. GASTER (FAMOTIDINE) (FAMOTIDINE) [Concomitant]
  7. LUPRAC (TORASEMIDE) (TORASEMIDE) [Concomitant]
  8. METHYCOBAL (MECOBALAMIN) (MECOBALAMIN) [Concomitant]

REACTIONS (2)
  - LABORATORY TEST [None]
  - ROAD TRAFFIC ACCIDENT [None]
